FAERS Safety Report 5158795-8 (Version None)
Quarter: 2006Q4

REPORT INFORMATION
  Report Type: 
  Country: None (occurrence: None)
  Receive Date: 20061115
  Receipt Date: 20061103
  Transmission Date: 20070319
  Serious: No
  Sender: FDA-Public Use
  Company Number: WAES 0608USA01489

PATIENT
  Age: 76 Year
  Sex: Male

DRUGS (6)
  1. CANCIDAS [Suspect]
     Dosage: 50 MG/DAILY IV
     Route: 042
     Dates: start: 20060303, end: 20060317
  2. [THERAPY UNSPECIFIED] [Concomitant]
  3. CODEINE PHOSPHATE [Concomitant]
  4. PANTOPRAZOLE SODIUM [Concomitant]
  5. RAMIPRIL [Concomitant]
  6. TORSEMIDE [Concomitant]

REACTIONS (1)
  - ACUTE MYELOID LEUKAEMIA [None]
